FAERS Safety Report 5522328-4 (Version None)
Quarter: 2007Q4

REPORT INFORMATION
  Report Type: 
  Country: None (occurrence: None)
  Receive Date: 20071120
  Receipt Date: 20071109
  Transmission Date: 20080405
  Serious: Yes (Other)
  Sender: FDA-Public Use
  Company Number: US-ASTRAZENECA-2007UW16998

PATIENT
  Age: 376 Month
  Sex: Female
  Weight: 98.6 kg

DRUGS (4)
  1. SEROQUEL [Suspect]
     Indication: BIPOLAR DISORDER
     Route: 048
     Dates: start: 20030101, end: 20060301
  2. GEODON [Concomitant]
  3. THORAZINE [Concomitant]
  4. LITHIUM CARBONATE [Concomitant]
     Dates: start: 20070201

REACTIONS (4)
  - DIABETES MELLITUS [None]
  - HYSTERECTOMY [None]
  - MEMORY IMPAIRMENT [None]
  - OBESITY [None]
